FAERS Safety Report 15104366 (Version 1)
Quarter: 2018Q3

REPORT INFORMATION
  Report Type: Spontaneous
  Country: CN (occurrence: CN)
  Receive Date: 20180703
  Receipt Date: 20180703
  Transmission Date: 20181010
  Serious: Yes (Other)
  Sender: FDA-Public Use
  Company Number: CN-PFIZER INC-2018266080

PATIENT
  Age: 55 Year
  Sex: Male
  Weight: 60 kg

DRUGS (4)
  1. CALCIUM CARBONATE/COLECALCIFEROL [Concomitant]
     Indication: FULL BLOOD COUNT
     Dosage: 0.6 G, 1X/DAY
     Route: 048
     Dates: start: 20180326, end: 20180402
  2. CICLOSPORIN [Concomitant]
     Active Substance: CYCLOSPORINE
     Indication: FULL BLOOD COUNT
     Dosage: 100 MG, 2X/DAY
     Route: 048
     Dates: start: 20180326, end: 20180402
  3. GAI SAN CHUN [Concomitant]
     Indication: FULL BLOOD COUNT
     Dosage: 0.25 UG, 1X/DAY
     Route: 048
     Dates: start: 20180326, end: 20180402
  4. METHYLPREDNISOLONE SODIUM SUCCINATE. [Suspect]
     Active Substance: METHYLPREDNISOLONE SODIUM SUCCINATE
     Indication: FULL BLOOD COUNT ABNORMAL
     Dosage: 80 MG, 1X/DAY
     Route: 041
     Dates: start: 20180326

REACTIONS (1)
  - Diabetes mellitus [Recovering/Resolving]

NARRATIVE: CASE EVENT DATE: 20180326
